FAERS Safety Report 8989390 (Version 1)
Quarter: 2012Q4

REPORT INFORMATION
  Report Type: 
  Country: TR (occurrence: TR)
  Receive Date: 20121228
  Receipt Date: 20121228
  Transmission Date: 20130627
  Serious: Yes (Life-Threatening)
  Sender: FDA-Public Use
  Company Number: TR-BAYER-2012-134499

PATIENT
  Age: 40 Year
  Sex: Female
  Weight: 53 kg

DRUGS (2)
  1. AVELOX [Suspect]
     Indication: PNEUMONIA
     Dosage: UNK
     Route: 048
     Dates: start: 20121125, end: 20121125
  2. ANTIHISTAMINES [Concomitant]
     Dosage: UNK
     Dates: start: 20121125

REACTIONS (13)
  - Hypotension [Recovered/Resolved]
  - Vomiting [Recovered/Resolved]
  - Nausea [Recovered/Resolved]
  - Tremor [Recovered/Resolved]
  - Amnesia [Recovered/Resolved]
  - Photosensitivity reaction [Recovered/Resolved]
  - Hypokalaemia [Recovered/Resolved]
  - Bradycardia [Recovered/Resolved]
  - Leukocytosis [Recovered/Resolved]
  - Hyperhidrosis [Recovered/Resolved]
  - Angioedema [Recovered/Resolved]
  - Abdominal pain upper [Recovered/Resolved]
  - Tinnitus [Recovered/Resolved]
